FAERS Safety Report 19748528 (Version 1)
Quarter: 2021Q3

REPORT INFORMATION
  Report Type: Spontaneous
  Country: US (occurrence: US)
  Receive Date: 20210826
  Receipt Date: 20210826
  Transmission Date: 20211014
  Serious: No
  Sender: FDA-Public Use
  Company Number: US-AUROBINDO-AUR-APL-2021-030037

PATIENT
  Sex: Female

DRUGS (1)
  1. IBUPROFEN TABLETS USP 800MG [Suspect]
     Active Substance: IBUPROFEN
     Indication: PRODUCT USED FOR UNKNOWN INDICATION
     Dosage: UNK
     Route: 065

REACTIONS (3)
  - Product use complaint [Unknown]
  - Drug ineffective [Unknown]
  - Wrong technique in product usage process [Unknown]
